FAERS Safety Report 15543178 (Version 1)
Quarter: 2018Q4

REPORT INFORMATION
  Report Type: Spontaneous
  Country: GB (occurrence: GB)
  Receive Date: 20181023
  Receipt Date: 20181023
  Transmission Date: 20190205
  Serious: Yes (Hospitalization)
  Sender: FDA-Public Use
  Company Number: GB-PFIZER INC-2018425520

PATIENT
  Sex: Female

DRUGS (9)
  1. HYDROXYZINE [Suspect]
     Active Substance: HYDROXYZINE HYDROCHLORIDE
     Dosage: 50 MG, DAILY
     Route: 048
  2. HYOSCINE BUTYLBROMIDE [Suspect]
     Active Substance: BUTYLSCOPOLAMINE
     Dosage: 60 MG, 1X/DAY
     Route: 048
  3. SALBUTAMOL [Concomitant]
     Active Substance: ALBUTEROL
  4. TRAMADOL. [Concomitant]
     Active Substance: TRAMADOL
  5. SERETIDE [Concomitant]
     Active Substance: FLUTICASONE PROPIONATE\SALMETEROL XINAFOATE
  6. PARACETAMOL [Concomitant]
     Active Substance: ACETAMINOPHEN
  7. AMLODIPINE BESILATE [Suspect]
     Active Substance: AMLODIPINE BESYLATE
     Dosage: 5 MG, 1X/DAY
     Route: 048
  8. FOLIC ACID. [Concomitant]
     Active Substance: FOLIC ACID
  9. HYDROXOCOBALAMIN [Concomitant]
     Active Substance: HYDROXOCOBALAMIN

REACTIONS (1)
  - Bowel movement irregularity [Recovering/Resolving]
